FAERS Safety Report 12510566 (Version 3)
Quarter: 2016Q3

REPORT INFORMATION
  Report Type: Spontaneous
  Country: US (occurrence: US)
  Receive Date: 20160629
  Receipt Date: 20160726
  Transmission Date: 20161109
  Serious: Yes (Hospitalization, Other)
  Sender: FDA-Public Use
  Company Number: US-LUNDBECK-DKLU2015653

PATIENT
  Age: 84 Year
  Sex: Female

DRUGS (4)
  1. NORTHERA [Suspect]
     Active Substance: DROXIDOPA
     Route: 065
     Dates: start: 20160501
  2. NORTHERA [Suspect]
     Active Substance: DROXIDOPA
     Indication: ORTHOSTATIC HYPOTENSION
     Dosage: 300 MG PLUS 200 MG FOR TOTAL DOSE OF 500 MG TID
     Route: 048
  3. NORTHERA [Suspect]
     Active Substance: DROXIDOPA
     Indication: NEURODEGENERATIVE DISORDER
     Dosage: 200 MG PLUS 300 MG FOR TOTAL DOSE OF 500 MG TID
     Route: 048
  4. NORTHERA [Suspect]
     Active Substance: DROXIDOPA
     Dosage: TITRATION SCHEDULE B
     Route: 065
     Dates: start: 20160503

REACTIONS (6)
  - Cerebrovascular accident [Not Recovered/Not Resolved]
  - Blindness [Unknown]
  - Hypotension [Unknown]
  - Hypophagia [Unknown]
  - Nausea [Unknown]
  - Blood pressure increased [Unknown]

NARRATIVE: CASE EVENT DATE: 20160617
